FAERS Safety Report 16688399 (Version 3)
Quarter: 2019Q3

REPORT INFORMATION
  Report Type: Spontaneous
  Country: US (occurrence: US)
  Receive Date: 20190809
  Receipt Date: 20190917
  Transmission Date: 20191004
  Serious: Yes (Other)
  Sender: FDA-Public Use
  Company Number: US-GLAXOSMITHKLINE-US2019AMR142854

PATIENT
  Sex: Female

DRUGS (4)
  1. CYTOXIN [Suspect]
     Active Substance: CYCLOPHOSPHAMIDE
     Indication: PRODUCT USED FOR UNKNOWN INDICATION
     Dosage: UNK
     Route: 065
  2. NUCALA [Suspect]
     Active Substance: MEPOLIZUMAB
     Indication: EOSINOPHILIC GRANULOMATOSIS WITH POLYANGIITIS
     Dosage: 300 MG, EVERY 28 DAYS
     Route: 058
     Dates: start: 20150203
  3. NUCALA [Suspect]
     Active Substance: MEPOLIZUMAB
     Indication: ASTHMA
  4. LYRICA [Suspect]
     Active Substance: PREGABALIN
     Indication: PRODUCT USED FOR UNKNOWN INDICATION
     Dosage: UNK
     Route: 065

REACTIONS (21)
  - Multiple allergies [Unknown]
  - Knee operation [Unknown]
  - Adrenal insufficiency [Unknown]
  - Sinusitis [Unknown]
  - Tooth loss [Unknown]
  - Eczema [Unknown]
  - Insomnia [Unknown]
  - Burning sensation [Unknown]
  - Suicidal ideation [Recovered/Resolved]
  - Dyspnoea [Unknown]
  - Skin discolouration [Unknown]
  - Adverse drug reaction [Recovered/Resolved]
  - Contusion [Unknown]
  - Fall [Unknown]
  - Somnolence [Unknown]
  - Fatigue [Unknown]
  - Neuropathy peripheral [Unknown]
  - Ear infection [Unknown]
  - High frequency ablation [Unknown]
  - Malaise [Unknown]
  - Colitis [Unknown]
